FAERS Safety Report 14432312 (Version 3)
Quarter: 2018Q2

REPORT INFORMATION
  Report Type: Report from Study
  Country: FR (occurrence: FR)
  Receive Date: 20180124
  Receipt Date: 20180621
  Transmission Date: 20180711
  Serious: Yes (Death, Hospitalization, Other)
  Sender: FDA-Public Use
  Company Number: FR-JAZZ-2018-FR-001469

PATIENT

DRUGS (7)
  1. DEFITELIO [Suspect]
     Active Substance: DEFIBROTIDE SODIUM
     Indication: VENOOCCLUSIVE DISEASE
  2. ZELITREX [Concomitant]
     Active Substance: VALACYCLOVIR HYDROCHLORIDE
     Indication: INFECTION PROPHYLAXIS
     Dosage: 1 G, QD
     Dates: start: 2015, end: 20160608
  3. DEFITELIO [Suspect]
     Active Substance: DEFIBROTIDE SODIUM
     Indication: PROPHYLAXIS
     Dosage: 25 MG/KG, QD
     Route: 042
     Dates: start: 20150707, end: 20150811
  4. PHENOXYMETHYLPENICILLIN POTASSIUM [Concomitant]
     Active Substance: PENICILLIN V POTASSIUM
     Indication: INFECTION PROPHYLAXIS
     Dosage: UNK
     Dates: start: 2015, end: 201604
  5. ENTOCORT [Concomitant]
     Active Substance: BUDESONIDE
     Indication: GRAFT VERSUS HOST DISEASE
     Dosage: UNK
     Dates: start: 20160205, end: 20160608
  6. POMALIDOMIDE [Concomitant]
     Active Substance: POMALIDOMIDE
     Indication: BLOOD DISORDER
     Dosage: UNK
     Route: 042
     Dates: start: 20160216, end: 201603
  7. LOVENOX [Concomitant]
     Active Substance: ENOXAPARIN SODIUM
     Indication: PULMONARY EMBOLISM
     Dosage: 0.4 ML, QD
     Route: 058
     Dates: start: 20160301, end: 20160608

REACTIONS (5)
  - Pulmonary embolism [Recovered/Resolved]
  - Escherichia infection [Recovered/Resolved]
  - Bronchospasm [Fatal]
  - Acute respiratory failure [Fatal]
  - Septic shock [Recovered/Resolved]

NARRATIVE: CASE EVENT DATE: 2016
